FAERS Safety Report 6025031-X (Version None)
Quarter: 2008Q4

REPORT INFORMATION
  Report Type: 
  Country: None (occurrence: None)
  Receive Date: 20081230
  Receipt Date: 20081230
  Transmission Date: 20090506
  Serious: Yes (Other)
  Sender: FDA-Public Use
  Company Number: None

PATIENT
  Age: 51 Year
  Sex: Female
  Weight: 86.1834 kg

DRUGS (8)
  1. LYRICA [Suspect]
     Indication: BURNING SENSATION
     Dosage: 50 MG 1X DAY -EVENING- PO
     Route: 048
     Dates: start: 20080920, end: 20081105
  2. LYRICA [Suspect]
     Indication: HYPOAESTHESIA
     Dosage: 50 MG 1X DAY -EVENING- PO
     Route: 048
     Dates: start: 20080920, end: 20081105
  3. LYRICA [Suspect]
     Indication: NEURALGIA
     Dosage: 50 MG 1X DAY -EVENING- PO
     Route: 048
     Dates: start: 20080920, end: 20081105
  4. LYRICA [Suspect]
     Indication: PARAESTHESIA
     Dosage: 50 MG 1X DAY -EVENING- PO
     Route: 048
     Dates: start: 20080920, end: 20081105
  5. LYRICA [Suspect]
     Indication: BURNING SENSATION
     Dosage: 75 MG. 1X DAY -EVENING-
     Dates: start: 20081009, end: 20081105
  6. LYRICA [Suspect]
     Indication: HYPOAESTHESIA
     Dosage: 75 MG. 1X DAY -EVENING-
     Dates: start: 20081009, end: 20081105
  7. LYRICA [Suspect]
     Indication: NEURALGIA
     Dosage: 75 MG. 1X DAY -EVENING-
     Dates: start: 20081009, end: 20081105
  8. LYRICA [Suspect]
     Indication: PARAESTHESIA
     Dosage: 75 MG. 1X DAY -EVENING-
     Dates: start: 20081009, end: 20081105

REACTIONS (2)
  - DEMENTIA ALZHEIMER'S TYPE [None]
  - MENTAL IMPAIRMENT [None]
